FAERS Safety Report 7950100-4 (Version None)
Quarter: 2011Q4

REPORT INFORMATION
  Report Type: 
  Country: None (occurrence: None)
  Receive Date: 20111130
  Receipt Date: 20111122
  Transmission Date: 20120403
  Serious: Yes (Hospitalization, Other)
  Sender: FDA-Public Use
  Company Number: BR-SANOFI-AVENTIS-2011SA076978

PATIENT
  Age: 81 Year
  Sex: Male
  Weight: 77 kg

DRUGS (4)
  1. AMARYL [Suspect]
     Route: 048
     Dates: start: 20060101, end: 20110101
  2. AMARYL [Suspect]
     Route: 048
     Dates: start: 20110101
  3. SIMVASTATIN [Concomitant]
  4. AMARYL [Suspect]
     Route: 048
     Dates: start: 20110101, end: 20110101

REACTIONS (8)
  - SKIN CANCER [None]
  - INFLAMMATION [None]
  - INTENTIONAL OVERDOSE [None]
  - RETINOPATHY [None]
  - BURSITIS [None]
  - CARDIOMYOPATHY [None]
  - BLINDNESS [None]
  - BLOOD GLUCOSE INCREASED [None]
